FAERS Safety Report 22635933 (Version 1)
Quarter: 2023Q2

REPORT INFORMATION
  Report Type: Report from Study
  Country: US (occurrence: US)
  Receive Date: 20230623
  Receipt Date: 20230623
  Transmission Date: 20230721
  Serious: Yes (Other)
  Sender: FDA-Public Use
  Company Number: US-ABBVIE-5180401

PATIENT
  Age: 45 Year
  Sex: Female

DRUGS (2)
  1. HUMIRA [Suspect]
     Active Substance: ADALIMUMAB
     Indication: Hidradenitis
     Dosage: FORM STRENGTH: 40 MILLIGRAM
     Route: 058
     Dates: start: 20220503
  2. HUMIRA [Suspect]
     Active Substance: ADALIMUMAB
     Dosage: FORM STRENGTH: 40 MILLIGRAM
     Route: 058

REACTIONS (10)
  - Keloid scar [Unknown]
  - Colectomy [Unknown]
  - Axillary pain [Unknown]
  - Pain of skin [Unknown]
  - Stress [Unknown]
  - Keloid scar [Unknown]
  - Thyroid operation [Unknown]
  - Keloid scar [Unknown]
  - Therapeutic response shortened [Unknown]
  - Procedural pain [Unknown]

NARRATIVE: CASE EVENT DATE: 20230522
